FAERS Safety Report 21227292 (Version 1)
Quarter: 2022Q3

REPORT INFORMATION
  Report Type: Spontaneous
  Country: US (occurrence: None)
  Receive Date: 20220817
  Receipt Date: 20220817
  Transmission Date: 20221027
  Serious: No
  Sender: FDA-Public Use
  Company Number: None

PATIENT
  Age: 42 Year
  Sex: Female
  Weight: 112.5 kg

DRUGS (1)
  1. ADDERALL [Suspect]
     Active Substance: AMPHETAMINE ASPARTATE\AMPHETAMINE SULFATE\DEXTROAMPHETAMINE SACCHARATE\DEXTROAMPHETAMINE SULFATE
     Indication: Attention deficit hyperactivity disorder
     Dosage: FREQUENCY : EVERY 4 HOURS;?
     Route: 048
     Dates: start: 20220816, end: 20220817

REACTIONS (4)
  - Headache [None]
  - Gastroenteritis viral [None]
  - Abdominal pain upper [None]
  - Product substitution issue [None]

NARRATIVE: CASE EVENT DATE: 20220816
